FAERS Safety Report 19691654 (Version 1)
Quarter: 2021Q3

REPORT INFORMATION
  Report Type: Report from Study
  Country: US (occurrence: US)
  Receive Date: 20210812
  Receipt Date: 20210812
  Transmission Date: 20211014
  Serious: Yes (Hospitalization, Other)
  Sender: FDA-Public Use
  Company Number: US-GLAXOSMITHKLINE-US2021AMR168255

PATIENT
  Age: 45 Year
  Sex: Female

DRUGS (11)
  1. ROPINIROLE HYDROCHLORIDE. [Suspect]
     Active Substance: ROPINIROLE HYDROCHLORIDE
     Indication: RESTLESS LEGS SYNDROME
     Dosage: 1 MG, BID
     Dates: start: 20171127
  2. OFATUMUMAB [Suspect]
     Active Substance: OFATUMUMAB
     Dosage: UNK
     Route: 048
  3. NYSTATIN. [Concomitant]
     Active Substance: NYSTATIN
     Indication: PRODUCT USED FOR UNKNOWN INDICATION
     Route: 065
  4. GABAPENTIN. [Concomitant]
     Active Substance: GABAPENTIN
     Indication: PRODUCT USED FOR UNKNOWN INDICATION
     Dosage: UNK
     Route: 065
  5. OFATUMUMAB [Suspect]
     Active Substance: OFATUMUMAB
     Indication: RELAPSING MULTIPLE SCLEROSIS
     Dosage: 20 MG, UNK
     Route: 058
     Dates: start: 20170530
  6. MICONAZOLE. [Concomitant]
     Active Substance: MICONAZOLE
     Indication: PRODUCT USED FOR UNKNOWN INDICATION
     Route: 065
  7. TRAZODONE [Concomitant]
     Active Substance: TRAZODONE HYDROCHLORIDE
     Indication: PRODUCT USED FOR UNKNOWN INDICATION
     Dosage: UNK
     Dates: start: 20170220
  8. PROZAC [Suspect]
     Active Substance: FLUOXETINE HYDROCHLORIDE
     Indication: DEPRESSION
     Dosage: 60 MG, QD
     Dates: start: 20170508
  9. GALCANEZUMAB [Concomitant]
     Active Substance: GALCANEZUMAB
     Indication: PRODUCT USED FOR UNKNOWN INDICATION
     Dosage: UNK
     Route: 065
  10. TERIFLUNOMIDE. [Suspect]
     Active Substance: TERIFLUNOMIDE
     Indication: MULTIPLE SCLEROSIS RELAPSE
     Dosage: UNK
     Route: 058
     Dates: start: 20170530
  11. DOXEPIN [Concomitant]
     Active Substance: DOXEPIN
     Indication: PRODUCT USED FOR UNKNOWN INDICATION
     Dosage: UNK
     Dates: start: 20161201

REACTIONS (32)
  - Urinary occult blood [Unknown]
  - Urinary retention [Unknown]
  - Hypertension [Unknown]
  - Carbon dioxide decreased [Unknown]
  - Haematuria [Unknown]
  - Amnesia [Unknown]
  - Migraine [Unknown]
  - Heart rate increased [Unknown]
  - Glomerular filtration rate decreased [Unknown]
  - Magnetic resonance imaging head abnormal [Unknown]
  - Opisthotonus [Unknown]
  - Neuropathy peripheral [Unknown]
  - Dysphagia [Unknown]
  - Status migrainosus [Unknown]
  - Weight decreased [Unknown]
  - Pruritus [Unknown]
  - Nitrite urine present [Unknown]
  - Tremor [Unknown]
  - Tachycardia [Unknown]
  - Depressed mood [Unknown]
  - Blood glucose increased [Unknown]
  - Blood sodium decreased [Unknown]
  - Protein urine present [Unknown]
  - Urine ketone body present [Unknown]
  - Cystitis [Unknown]
  - Restless legs syndrome [Unknown]
  - Syncope [Unknown]
  - Seizure [Unknown]
  - Arthralgia [Unknown]
  - Pain in extremity [Unknown]
  - Anxiety [Unknown]
  - Drug ineffective [Unknown]

NARRATIVE: CASE EVENT DATE: 20180919
